FAERS Safety Report 8097958-9 (Version None)
Quarter: 2012Q1

REPORT INFORMATION
  Report Type: 
  Country: None (occurrence: None)
  Receive Date: 20120128
  Receipt Date: 20110801
  Transmission Date: 20120608
  Serious: No
  Sender: FDA-Public Use
  Company Number: US-ABBOTT-11P-163-0843234-00

PATIENT
  Sex: Male
  Weight: 72.64 kg

DRUGS (3)
  1. RECLAST [Concomitant]
     Indication: OSTEOPOROSIS PROPHYLAXIS
  2. HUMIRA [Suspect]
     Indication: CROHN'S DISEASE
     Dates: start: 20110201
  3. VITAMINS AND MINERALS [Concomitant]
     Indication: SUPPLEMENTATION THERAPY

REACTIONS (4)
  - SKIN FISSURES [None]
  - RASH [None]
  - PRURITUS [None]
  - DRY SKIN [None]
